FAERS Safety Report 23768230 (Version 1)
Quarter: 2024Q2

REPORT INFORMATION
  Report Type: Spontaneous
  Country: US (occurrence: None)
  Receive Date: 20240419
  Receipt Date: 20240419
  Transmission Date: 20240716
  Serious: No
  Sender: FDA-Public Use
  Company Number: None

PATIENT
  Sex: Male

DRUGS (3)
  1. LENALIDOMIDE [Suspect]
     Active Substance: LENALIDOMIDE
     Indication: Plasma cell myeloma
     Dosage: OTHER FREQUENCY : 14 D ON , 7 D OFF;?
     Route: 048
     Dates: start: 202312
  2. NIVESTYM [Concomitant]
     Active Substance: FILGRASTIM-AAFI
  3. REVLIMID [Concomitant]
     Active Substance: LENALIDOMIDE

REACTIONS (3)
  - Stem cell transplant [None]
  - Therapy cessation [None]
  - Cardiac disorder [None]
